FAERS Safety Report 14543942 (Version 1)
Quarter: 2018Q1

REPORT INFORMATION
  Report Type: Report from Study
  Country: US (occurrence: US)
  Receive Date: 20180216
  Receipt Date: 20180216
  Transmission Date: 20180509
  Serious: No
  Sender: FDA-Public Use
  Company Number: US-IPSEN BIOPHARMACEUTICALS, INC.-2017-03428

PATIENT
  Sex: Male
  Weight: 11.6 kg

DRUGS (2)
  1. DYSPORT [Suspect]
     Active Substance: ABOBOTULINUMTOXINA
     Indication: OFF LABEL USE
     Dosage: 125 U
     Route: 065
     Dates: start: 20170306, end: 20170306
  2. DYSPORT [Suspect]
     Active Substance: ABOBOTULINUMTOXINA
     Indication: MUSCLE SPASTICITY
     Dosage: 125 U
     Route: 065
     Dates: start: 20160603, end: 20160603

REACTIONS (1)
  - Off label use [Unknown]
